FAERS Safety Report 7003168-6 (Version None)
Quarter: 2010Q3

REPORT INFORMATION
  Report Type: 
  Country: None (occurrence: None)
  Receive Date: 20100920
  Receipt Date: 20100126
  Transmission Date: 20110219
  Serious: No
  Sender: FDA-Public Use
  Company Number: US-ASTRAZENECA-2010SE03559

PATIENT
  Sex: Female

DRUGS (3)
  1. SEROQUEL [Suspect]
     Route: 048
  2. ABILIFY [Concomitant]
  3. CYMBALTA [Concomitant]

REACTIONS (7)
  - AFFECT LABILITY [None]
  - ANXIETY [None]
  - DRUG DOSE OMISSION [None]
  - HEADACHE [None]
  - INSOMNIA [None]
  - NAUSEA [None]
  - STRESS [None]
